FAERS Safety Report 4357290-3 (Version None)
Quarter: 2004Q2

REPORT INFORMATION
  Report Type: 
  Country: None (occurrence: None)
  Receive Date: 20040512
  Receipt Date: 20040512
  Transmission Date: 20050107
  Serious: Yes (Death)
  Sender: FDA-Public Use
  Company Number: None

PATIENT
  Age: 74 Year
  Sex: Male
  Weight: 75 kg

DRUGS (7)
  1. QUADRAMET [Suspect]
     Indication: PROSTATE CANCER METASTATIC
     Dosage: 2.8 G BG
     Dates: start: 20030910
  2. REPAGLINIDE (NOVONORM) [Concomitant]
  3. LISINOPRIL (LISIHERAL) [Concomitant]
  4. TORASEMILE (TOREM) [Concomitant]
  5. PREDNISONE (DECORTIN H) [Concomitant]
  6. AMITRIPTYLINE (AMINEURIN) [Concomitant]
  7. RAMSULOSIN HYDROCHLORIDE (OMNI) [Concomitant]

REACTIONS (3)
  - HAEMORRHAGE [None]
  - PROCTITIS [None]
  - THROMBOCYTOPENIA [None]
